FAERS Safety Report 20609007 (Version 2)
Quarter: 2022Q2

REPORT INFORMATION
  Report Type: Spontaneous
  Country: US (occurrence: US)
  Receive Date: 20220317
  Receipt Date: 20220405
  Transmission Date: 20220720
  Serious: Yes (Hospitalization)
  Sender: FDA-Public Use
  Company Number: US-TEVA-2022-US-2016808

PATIENT
  Age: 74 Year
  Sex: Female

DRUGS (4)
  1. AMLODIPINE\OLMESARTAN [Interacting]
     Active Substance: AMLODIPINE\OLMESARTAN
     Indication: Hypertension
     Route: 065
  2. CHLORTHALIDONE [Interacting]
     Active Substance: CHLORTHALIDONE
     Indication: Hypertension
     Dosage: TWO EXTRA DOSES
     Route: 065
  3. BERBERINE [Interacting]
     Active Substance: BERBERINE
     Indication: Nutritional supplementation
     Route: 048
  4. MOMORDICA CHARANTIA FRUIT [Interacting]
     Active Substance: MOMORDICA CHARANTIA FRUIT
     Indication: Nutritional supplementation
     Route: 048

REACTIONS (5)
  - Hypertension [Unknown]
  - Hypokalaemia [Recovering/Resolving]
  - Ventricular extrasystoles [Recovering/Resolving]
  - Drug interaction [Unknown]
  - Overdose [Unknown]
